FAERS Safety Report 19771350 (Version 2)
Quarter: 2021Q3

REPORT INFORMATION
  Report Type: Spontaneous
  Country: US (occurrence: US)
  Receive Date: 20210831
  Receipt Date: 20210831
  Transmission Date: 20211014
  Serious: Yes (Other)
  Sender: FDA-Public Use
  Company Number: US-PFIZER INC-202101080407

PATIENT
  Age: 74 Year
  Sex: Female

DRUGS (1)
  1. VYNDAMAX [Suspect]
     Active Substance: TAFAMIDIS
     Dosage: 61 MG

REACTIONS (20)
  - Ischaemic cardiomyopathy [Unknown]
  - Cardiac amyloidosis [Unknown]
  - Left ventricular hypertrophy [Unknown]
  - Peroneal nerve palsy [Unknown]
  - Major depression [Unknown]
  - Ventricular extrasystoles [Unknown]
  - Sciatica [Unknown]
  - Fatigue [Unknown]
  - Bundle branch block left [Unknown]
  - Varicose vein [Unknown]
  - Hereditary neuropathic amyloidosis [Unknown]
  - Arthropathy [Unknown]
  - Type V hyperlipidaemia [Unknown]
  - Lumbar radiculopathy [Unknown]
  - Coronary artery disease [Unknown]
  - Essential hypertension [Unknown]
  - Back pain [Unknown]
  - Trigeminal neuralgia [Unknown]
  - Atrial fibrillation [Unknown]
  - Hypertonic bladder [Unknown]
